FAERS Safety Report 14260594 (Version 1)
Quarter: 2017Q4

REPORT INFORMATION
  Report Type: Spontaneous
  Country: US (occurrence: US)
  Receive Date: 20171207
  Receipt Date: 20171207
  Transmission Date: 20180321
  Serious: Yes (Death, Other)
  Sender: FDA-Public Use
  Company Number: US-NOVOPROD-575264

PATIENT
  Age: 85 Year
  Sex: Female

DRUGS (1)
  1. LEVEMIR [Suspect]
     Active Substance: INSULIN DETEMIR
     Indication: PRODUCT USED FOR UNKNOWN INDICATION
     Dosage: UNK
     Route: 058
     Dates: start: 2015

REACTIONS (7)
  - Cerebrovascular accident [Fatal]
  - Cerebrovascular accident [Unknown]
  - Coma [Fatal]
  - Aneurysm [Unknown]
  - Chronic obstructive pulmonary disease [Unknown]
  - Dementia Alzheimer^s type [Unknown]
  - Cardiac disorder [Unknown]
